FAERS Safety Report 8126203-0 (Version None)
Quarter: 2012Q1

REPORT INFORMATION
  Report Type: 
  Country: None (occurrence: None)
  Receive Date: 20120209
  Receipt Date: 20120206
  Transmission Date: 20120608
  Serious: Yes (Death)
  Sender: FDA-Public Use
  Company Number: PHHY2012ES010038

PATIENT
  Age: 94 Year
  Sex: Female

DRUGS (6)
  1. FUROSEMIDE [Suspect]
     Dosage: UNK
     Route: 048
     Dates: start: 20070905
  2. DIGOXIN [Concomitant]
  3. BOI K [Suspect]
     Dosage: UNK
     Route: 048
     Dates: start: 20070825
  4. OMEPRAZOLE [Concomitant]
  5. DIOVAN [Suspect]
     Dosage: 80 MG, QD
     Route: 048
     Dates: start: 20070825, end: 20090304
  6. SINTROM [Concomitant]

REACTIONS (3)
  - HYPERKALAEMIA [None]
  - RENAL FAILURE ACUTE [None]
  - CARDIAC FAILURE [None]
